FAERS Safety Report 7853792-3 (Version None)
Quarter: 2011Q4

REPORT INFORMATION
  Report Type: 
  Country: None (occurrence: None)
  Receive Date: 20111026
  Receipt Date: 20111021
  Transmission Date: 20120403
  Serious: Yes (Other)
  Sender: FDA-Public Use
  Company Number: JP-PFIZER INC-2011250928

PATIENT
  Age: 56 Year
  Sex: Female

DRUGS (11)
  1. LYRICA [Suspect]
     Dosage: 75 MG, 1X/DAY
     Route: 048
  2. PRAMIPEXOLE DIHYDROCHLORIDE [Concomitant]
     Dosage: 1 MG, 3X/DAY
     Route: 048
  3. VOLTAREN [Concomitant]
     Dosage: 50 MG
  4. ARTANE [Suspect]
     Dosage: 1 MG, 1X/DAY
     Route: 048
  5. MENEST [Concomitant]
     Dosage: 100 MG, 3X/DAY
     Route: 048
  6. MUCOSTA [Concomitant]
     Dosage: 1 DF, 3X/DAY
  7. MOTILIUM [Concomitant]
     Dosage: 10 MG, 2X/DAY
  8. KENTAN [Concomitant]
     Dosage: 60 MG, 3X/DAY
  9. LYRICA [Suspect]
     Dosage: 75 MG, 2X/DAY
     Route: 048
     Dates: start: 20110916
  10. MAGMITT [Concomitant]
     Dosage: 500 MG, 3X/DAY
     Route: 048
  11. SYMMETREL [Concomitant]
     Dosage: 100 MG, 2X/DAY

REACTIONS (2)
  - HEARING IMPAIRED [None]
  - SOMNOLENCE [None]
